FAERS Safety Report 9657489 (Version 1)
Quarter: 2013Q4

REPORT INFORMATION
  Report Type: Spontaneous
  Country: US (occurrence: US)
  Receive Date: 20131030
  Receipt Date: 20131030
  Transmission Date: 20140711
  Serious: No
  Sender: FDA-Public Use
  Company Number: US-PURDUE-USA-2011-0080174

PATIENT
  Age: 60 Year
  Sex: Female
  Weight: 65.76 kg

DRUGS (7)
  1. OXYCONTIN TABLETS [Suspect]
     Indication: PAIN
     Dosage: 40MG DAILY AT 7AM
     Dates: start: 2002
  2. OXYCONTIN TABLETS [Suspect]
     Dosage: 60MG DAILY AT 3PM
  3. OXYCONTIN TABLETS [Suspect]
     Dosage: 40MG DAILY AT 11PM
     Dates: end: 201112
  4. TOPAMAX [Concomitant]
     Indication: PRODUCT USED FOR UNKNOWN INDICATION
     Dosage: 150 MG, HS
  5. VALIUM                             /00017001/ [Concomitant]
     Indication: PRODUCT USED FOR UNKNOWN INDICATION
     Dosage: 10-20MG HS PRN
  6. DILAUDID TABLET [Concomitant]
     Indication: PRODUCT USED FOR UNKNOWN INDICATION
     Dosage: 4 MG, PRN
  7. LEVOTHYROXIN [Concomitant]
     Indication: PRODUCT USED FOR UNKNOWN INDICATION
     Dosage: 75 MCG, DAILY

REACTIONS (1)
  - Drug intolerance [Recovered/Resolved]
